FAERS Safety Report 8887381 (Version 2)
Quarter: 2012Q4

REPORT INFORMATION
  Report Type: 
  Country: US (occurrence: US)
  Receive Date: 20121105
  Receipt Date: 20121118
  Transmission Date: 20130627
  Serious: Yes (Hospitalization, Other)
  Sender: FDA-Public Use
  Company Number: US-BRISTOL-MYERS SQUIBB COMPANY-17070327

PATIENT
  Age: 84 Year
  Sex: Female

DRUGS (1)
  1. ORENCIA [Suspect]
     Route: 042
     Dates: end: 201207

REACTIONS (8)
  - Ear neoplasm [Unknown]
  - Malaise [Unknown]
  - Rheumatoid arthritis [Unknown]
  - Clavicle fracture [Unknown]
  - Fall [Unknown]
  - Diabetes mellitus [Unknown]
  - Arthropathy [Unknown]
  - Back pain [Unknown]
